FAERS Safety Report 5176707-8 (Version None)
Quarter: 2006Q4

REPORT INFORMATION
  Report Type: 
  Country: None (occurrence: None)
  Receive Date: 20061218
  Receipt Date: 20061207
  Transmission Date: 20070319
  Serious: Yes (Other)
  Sender: FDA-Public Use
  Company Number: PHBS2006BR19290

PATIENT
  Sex: Male

DRUGS (7)
  1. DIOVAN HCT [Suspect]
     Dosage: VALS 160 / HCT 12.5 MG/DAY
     Route: 048
  2. ALPRAZOLAM [Concomitant]
     Indication: INSOMNIA
     Dosage: 0.5 MG, UNK
  3. VIRACEPT [Concomitant]
     Dosage: 1250 MG, UNK
     Route: 048
  4. LAMIVUDINE [Concomitant]
     Dosage: 150 MG, UNK
     Route: 048
  5. ZIDOVUDINE [Concomitant]
     Dosage: 300 MG, UNK
     Route: 048
  6. CAPILAREMA [Concomitant]
  7. NICOTINIC ACID [Concomitant]

REACTIONS (5)
  - COLITIS EROSIVE [None]
  - COUGH [None]
  - INFLUENZA [None]
  - INSOMNIA [None]
  - NASOPHARYNGITIS [None]
